FAERS Safety Report 12951904 (Version 2)
Quarter: 2016Q4

REPORT INFORMATION
  Report Type: Spontaneous
  Country: US (occurrence: US)
  Receive Date: 20161117
  Receipt Date: 20161212
  Transmission Date: 20170207
  Serious: Yes (Hospitalization)
  Sender: FDA-Public Use
  Company Number: US-NOVOPROD-501303

PATIENT
  Age: 47 Year
  Sex: Male
  Weight: 104.31 kg

DRUGS (2)
  1. NOVOLOG [Suspect]
     Active Substance: INSULIN ASPART
     Indication: TYPE 1 DIABETES MELLITUS
     Dosage: UNK
     Route: 058
     Dates: start: 2014, end: 20160708
  2. NOVOLIN N [Suspect]
     Active Substance: INSULIN HUMAN
     Indication: TYPE 1 DIABETES MELLITUS
     Dosage: 7 U, SINGLE
     Route: 058
     Dates: start: 20160709, end: 20160709

REACTIONS (1)
  - Shock hypoglycaemic [Recovered/Resolved]

NARRATIVE: CASE EVENT DATE: 20160709
